FAERS Safety Report 19617792 (Version 2)
Quarter: 2021Q3

REPORT INFORMATION
  Report Type: Spontaneous
  Country: US (occurrence: US)
  Receive Date: 20210728
  Receipt Date: 20210902
  Transmission Date: 20211014
  Serious: Yes (Death, Hospitalization, Other)
  Sender: FDA-Public Use
  Company Number: US-BRISTOL-MYERS SQUIBB COMPANY-BMS-2021-073548

PATIENT
  Age: 53 Year
  Sex: Female
  Weight: 48.08 kg

DRUGS (2)
  1. OPDIVO [Suspect]
     Active Substance: NIVOLUMAB
     Indication: MALIGNANT MELANOMA
     Dosage: 60 GRAM, EVERY 21 DAYS, INFUSION
     Route: 042
     Dates: start: 20210422
  2. YERVOY [Suspect]
     Active Substance: IPILIMUMAB
     Indication: MALIGNANT MELANOMA
     Dosage: 158 MG, EVERY 21 DAYS, INFUSION
     Route: 042
     Dates: start: 20210422

REACTIONS (2)
  - Death [Fatal]
  - Prescribed overdose [Unknown]

NARRATIVE: CASE EVENT DATE: 20210628
